FAERS Safety Report 26048781 (Version 2)
Quarter: 2025Q4

REPORT INFORMATION
  Report Type: Report from Study
  Country: CA (occurrence: CA)
  Receive Date: 20251115
  Receipt Date: 20251229
  Transmission Date: 20260118
  Serious: Yes (Other)
  Sender: ALEXION PHARMACEUTICALS
  Company Number: CA-AstraZeneca-CH-00987412A

PATIENT
  Sex: Female
  Weight: 13.8 kg

DRUGS (5)
  1. SOLIRIS [Suspect]
     Active Substance: ECULIZUMAB
     Indication: Atypical haemolytic uraemic syndrome
     Dosage: 300 MILLIGRAM, QW
     Dates: start: 20190224, end: 20190303
  2. SOLIRIS [Suspect]
     Active Substance: ECULIZUMAB
     Dosage: 300 MILLIGRAM, Q3W
     Dates: start: 20190324
  3. SOLIRIS [Suspect]
     Active Substance: ECULIZUMAB
     Dosage: 300 MILLIGRAM, Q2W
     Dates: start: 2023
  4. AMOXICILLIN [Concomitant]
     Active Substance: AMOXICILLIN
     Indication: Prophylaxis
     Dosage: 100 MILLIGRAM, BID
     Route: 065
  5. BENADRYL [Concomitant]
     Active Substance: DIPHENHYDRAMINE HYDROCHLORIDE
     Route: 065

REACTIONS (5)
  - Neutropenia [Unknown]
  - Thrombocytopenia [Unknown]
  - Seizure [Unknown]
  - Short stature [Unknown]
  - Pharyngitis streptococcal [Recovered/Resolved]
